FAERS Safety Report 17480338 (Version 2)
Quarter: 2020Q2

REPORT INFORMATION
  Report Type: Spontaneous
  Country: US (occurrence: US)
  Receive Date: 20200228
  Receipt Date: 20200526
  Transmission Date: 20200713
  Serious: No
  Sender: FDA-Public Use
  Company Number: US-JNJFOC-20200211093

PATIENT
  Age: 79 Year
  Sex: Female
  Weight: 72.64 kg

DRUGS (1)
  1. WOMENS ROGAINE UNSCENTED [Suspect]
     Active Substance: MINOXIDIL
     Indication: ALOPECIA
     Dosage: HALF A CAPFUL ONCE DAILY
     Route: 061
     Dates: start: 20200127, end: 202002

REACTIONS (3)
  - Application site pruritus [Recovered/Resolved]
  - Exfoliative rash [Recovered/Resolved]
  - Application site rash [Recovered/Resolved]

NARRATIVE: CASE EVENT DATE: 202002
